FAERS Safety Report 15356111 (Version 4)
Quarter: 2018Q4

REPORT INFORMATION
  Report Type: Report from Study
  Country: BE (occurrence: BE)
  Receive Date: 20180906
  Receipt Date: 20181011
  Transmission Date: 20190204
  Serious: Yes (Hospitalization, Other)
  Sender: FDA-Public Use
  Company Number: BE-PFIZER INC-2018352985

PATIENT
  Age: 70 Year
  Sex: Male
  Weight: 70 kg

DRUGS (26)
  1. MABTHERA [Suspect]
     Active Substance: RITUXIMAB
     Dosage: 1 G, UNK
     Route: 065
     Dates: start: 20161219
  2. ASAFLOW [Concomitant]
     Active Substance: ASPIRIN
  3. ENDOXAN [CYCLOPHOSPHAMIDE MONOHYDRATE] [Concomitant]
     Active Substance: CYCLOPHOSPHAMIDE
     Dosage: 1 G, MONTHLY
     Route: 042
     Dates: start: 201701
  4. METHYLPREDNISOLONE. [Suspect]
     Active Substance: METHYLPREDNISOLONE
     Dosage: 16 MG, UNK
     Route: 048
     Dates: start: 20171107
  5. METHYLPREDNISOLONE. [Suspect]
     Active Substance: METHYLPREDNISOLONE
     Dosage: 20 MG, UNK
     Route: 048
     Dates: start: 20171201
  6. ROACTEMRA [Suspect]
     Active Substance: TOCILIZUMAB
     Dosage: 162 MG, UNK (EVERY TWO WEEKS)
     Route: 058
     Dates: start: 201807
  7. PANTOMED [PANTOPRAZOLE SODIUM SESQUIHYDRATE] [Concomitant]
     Dosage: UNK
  8. ENDOXAN [CYCLOPHOSPHAMIDE MONOHYDRATE] [Concomitant]
     Active Substance: CYCLOPHOSPHAMIDE
     Dosage: 1 G, WEEKLY
     Route: 042
     Dates: start: 201707
  9. FLUOXONE [Concomitant]
  10. METHYLPREDNISOLONE. [Suspect]
     Active Substance: METHYLPREDNISOLONE
     Dosage: 20 MG, UNK
     Route: 048
  11. METHYLPREDNISOLONE SODIUM SUCCINATE. [Suspect]
     Active Substance: METHYLPREDNISOLONE SODIUM SUCCINATE
     Indication: POLYARTERITIS NODOSA
     Dosage: 1 G, 3X/DAY (PULSE)
     Route: 042
     Dates: start: 201701
  12. MABTHERA [Suspect]
     Active Substance: RITUXIMAB
     Indication: POLYARTERITIS NODOSA
     Dosage: 1 G, UNK
     Route: 065
     Dates: start: 20161128
  13. FOSAMAX [Concomitant]
     Active Substance: ALENDRONATE SODIUM
  14. METHYLPREDNISOLONE. [Suspect]
     Active Substance: METHYLPREDNISOLONE
     Dosage: 16 MG, UNK
     Route: 048
     Dates: start: 20180105
  15. IMURAN [AZATHIOPRINE] [Concomitant]
     Dosage: 150 MG, UNK
  16. METHYLPREDNISOLONE. [Suspect]
     Active Substance: METHYLPREDNISOLONE
     Dosage: 64 MG, DAILY
     Route: 048
  17. METHYLPREDNISOLONE. [Suspect]
     Active Substance: METHYLPREDNISOLONE
     Dosage: 8 MG, DAILY
     Route: 048
     Dates: start: 20180605
  18. ROACTEMRA [Suspect]
     Active Substance: TOCILIZUMAB
     Indication: POLYARTERITIS NODOSA
     Dosage: 162 MG, WEEKLY
     Route: 058
     Dates: start: 20180207
  19. ALPRAZOLAM. [Concomitant]
     Active Substance: ALPRAZOLAM
  20. METHYLPREDNISOLONE. [Suspect]
     Active Substance: METHYLPREDNISOLONE
     Dosage: 12 MG, 1X/DAY
     Route: 048
  21. ZOLPIDEM [Concomitant]
     Active Substance: ZOLPIDEM\ZOLPIDEM TARTRATE
  22. ACICLOVIR [Concomitant]
     Active Substance: ACYCLOVIR
     Indication: POLYARTERITIS NODOSA
     Dosage: 400 MG, 2X/DAY
     Route: 065
  23. STEOVIT D3 [Concomitant]
     Active Substance: CALCIUM CARBONATE\CHOLECALCIFEROL
  24. METHYLPREDNISOLONE. [Suspect]
     Active Substance: METHYLPREDNISOLONE
     Indication: POLYARTERITIS NODOSA
     Dosage: 32 MG, DAILY
     Route: 048
     Dates: start: 20151015
  25. IMURAN [Suspect]
     Active Substance: AZATHIOPRINE
     Indication: POLYARTERITIS NODOSA
     Dosage: 150 MG, 1X/DAY
     Dates: start: 201707
  26. COTRIMOXAZOL [Concomitant]
     Active Substance: SULFAMETHOXAZOLE\TRIMETHOPRIM
     Indication: POLYARTERITIS NODOSA
     Dosage: 960 MG, ALTERNATE DAY
     Route: 065

REACTIONS (5)
  - Psychotic disorder [Unknown]
  - Inflammation [Unknown]
  - Off label use [Unknown]
  - Intentional product use issue [Unknown]
  - Disease recurrence [Unknown]

NARRATIVE: CASE EVENT DATE: 20161128
